FAERS Safety Report 8976395 (Version 1)
Quarter: 2012Q4

REPORT INFORMATION
  Report Type: 
  Country: DK (occurrence: IT)
  Receive Date: 20121220
  Receipt Date: 20121220
  Transmission Date: 20130627
  Serious: Yes (Hospitalization)
  Sender: FDA-Public Use
  Company Number: IT-FRI-1000041154

PATIENT
  Age: 57 Year
  Sex: Female

DRUGS (3)
  1. CITALOPRAM [Suspect]
     Indication: DEPRESSION
     Dosage: 10 mg
     Route: 048
     Dates: start: 20120925, end: 20121008
  2. TRITTICO [Suspect]
     Indication: DEPRESSION
     Dosage: 12.5 mg
     Route: 048
     Dates: start: 20120925, end: 20121008
  3. XANAX [Concomitant]
     Indication: DEPRESSION
     Dates: start: 20120925, end: 20121008

REACTIONS (1)
  - Muscle twitching [Recovered/Resolved]
